FAERS Safety Report 6214398-5 (Version None)
Quarter: 2009Q2

REPORT INFORMATION
  Report Type: 
  Country: None (occurrence: None)
  Receive Date: 20090604
  Receipt Date: 20090528
  Transmission Date: 20091009
  Serious: Yes (Hospitalization)
  Sender: FDA-Public Use
  Company Number: US-ASTRAZENECA-2006UW17605

PATIENT
  Age: 77 Year
  Sex: Female
  Weight: 73.5 kg

DRUGS (8)
  1. TOPROL-XL [Suspect]
     Dosage: 50 MG IN PM AND 25 IN AM
     Route: 048
     Dates: start: 20010101
  2. CRESTOR [Suspect]
     Indication: BLOOD CHOLESTEROL INCREASED
     Route: 048
     Dates: start: 20060801
  3. WARFARIN SODIUM [Concomitant]
     Indication: ATRIAL FIBRILLATION
     Route: 048
  4. WARFARIN SODIUM [Concomitant]
     Dosage: 6 TIMES A WEEK
     Route: 048
  5. SULAR [Concomitant]
     Route: 048
     Dates: start: 19940101
  6. AMILORIDE HYDROCHLORIDE [Concomitant]
     Route: 048
     Dates: start: 19990101
  7. SYNTHROID [Concomitant]
     Route: 048
     Dates: start: 19790101
  8. MICARDIS HCT [Concomitant]
     Dosage: 80/25 MG
     Route: 048
     Dates: start: 19990101

REACTIONS (6)
  - ATRIAL FIBRILLATION [None]
  - FALL [None]
  - HEART RATE INCREASED [None]
  - INTERNATIONAL NORMALISED RATIO INCREASED [None]
  - OEDEMA PERIPHERAL [None]
  - RASH [None]
